FAERS Safety Report 5473179-0 (Version None)
Quarter: 2007Q3

REPORT INFORMATION
  Report Type: 
  Country: None (occurrence: None)
  Receive Date: 20070927
  Receipt Date: 20070920
  Transmission Date: 20080115
  Serious: Yes (Other)
  Sender: FDA-Public Use
  Company Number: 2007-04307

PATIENT
  Age: 18 Year
  Sex: Female

DRUGS (2)
  1. FIORINAL [Suspect]
     Indication: DRUG EXPOSURE DURING PREGNANCY
     Dosage: ORAL
     Route: 048
  2. ENERGY DRINK (SUGAR, TAURINE, GLUCURONOLACTONE, VIT B-COMPLEX, CAFFEIN [Suspect]
     Indication: DRUG EXPOSURE DURING PREGNANCY
     Dosage: ORAL
     Route: 048

REACTIONS (1)
  - CONVULSION [None]
